FAERS Safety Report 12245886 (Version 1)
Quarter: 2016Q2

REPORT INFORMATION
  Report Type: Spontaneous
  Country: CA (occurrence: CA)
  Receive Date: 20160407
  Receipt Date: 20160407
  Transmission Date: 20160815
  Serious: Yes (Life-Threatening)
  Sender: FDA-Public Use
  Company Number: CA-LHC-2016056

PATIENT
  Age: 3 Month
  Weight: 3.7 kg

DRUGS (1)
  1. OXYGEN (GENERIC) [Suspect]
     Active Substance: OXYGEN
     Indication: HYPOXIA

REACTIONS (5)
  - Barotrauma [Recovering/Resolving]
  - Bradycardia [None]
  - Pulseless electrical activity [None]
  - Pneumothorax [Recovering/Resolving]
  - Cardiac arrest [None]
